FAERS Safety Report 24644212 (Version 2)
Quarter: 2024Q4

REPORT INFORMATION
  Report Type: Report from Study
  Country: DE (occurrence: DE)
  Receive Date: 20241120
  Receipt Date: 20241209
  Transmission Date: 20250115
  Serious: Yes (Other)
  Sender: ABBVIE
  Company Number: DE-ABBVIE-6006824

PATIENT
  Sex: Male

DRUGS (17)
  1. CARBIDOPA\LEVODOPA [Suspect]
     Active Substance: CARBIDOPA\LEVODOPA
     Indication: Parkinson^s disease
     Dosage: MD: 6.0ML; CRD: 2.4ML/H; CRN: 1.0ML/H; ED: 2.0ML
     Route: 050
     Dates: start: 20200618
  2. CARBIDOPA\LEVODOPA [Suspect]
     Active Substance: CARBIDOPA\LEVODOPA
     Dosage: MD: 8.0ML; CRD: 2.6ML/H; CRN: 1.0ML/H; ED: 2.0ML?FORM STRENGTH: 100 MG
     Route: 050
  3. GABAPENTIN [Concomitant]
     Active Substance: GABAPENTIN
     Indication: Product used for unknown indication
     Dosage: TIME INTERVAL: 0.33333333 DAYS: FORM STRENGTH: 400 MG
  4. VITAMIN D [Concomitant]
     Active Substance: VITAMIN D NOS
     Indication: Product used for unknown indication
     Dosage: FORM STRENGTH 1000 IU
  5. METOPROLOL [Concomitant]
     Active Substance: METOPROLOL
     Indication: Product used for unknown indication
     Dosage: FORM STRENGTH 47.5 MG
  6. LEVODOPA COMP B [Concomitant]
     Indication: Product used for unknown indication
  7. MOVICOL [Concomitant]
     Active Substance: POLYETHYLENE GLYCOL 3350\POTASSIUM CHLORIDE\SODIUM BICARBONATE\SODIUM CHLORIDE
     Indication: Product used for unknown indication
     Dosage: SACHET
  8. DICLOFENAC [Concomitant]
     Active Substance: DICLOFENAC
     Indication: Pain
     Dosage: UP TO 2 TIMES IN 24 HOURS
  9. LEVODOPA/CARBIDOPA PCH RETARD [Concomitant]
     Indication: Product used for unknown indication
     Dosage: 200MG/50MG
  10. ASPIRIN [Concomitant]
     Active Substance: ASPIRIN
     Indication: Product used for unknown indication
     Dosage: FORM STRENGTH: 100 MILLIGRAM
  11. PIPAMPERONE [Concomitant]
     Active Substance: PIPAMPERONE
     Indication: Restlessness
     Dosage: UP TO 3 TIMES IN 24 HOURS
  12. ELIQUIS [Concomitant]
     Active Substance: APIXABAN
     Indication: Product used for unknown indication
     Dosage: FORM STRENGTH: 2.5 MILLIGRAM
  13. IBUPROFEN [Concomitant]
     Active Substance: IBUPROFEN
     Indication: Product used for unknown indication
     Dosage: FORM STRENGTH 100 MG
  14. MIDODRINE HYDROCHLORIDE [Concomitant]
     Active Substance: MIDODRINE HYDROCHLORIDE
     Indication: Product used for unknown indication
     Dosage: TIME INTERVAL: 0.33333333 DAYS: FORM STRENGTH 2.5 MG
  15. QUETIAPINE [Concomitant]
     Active Substance: QUETIAPINE
     Indication: Product used for unknown indication
     Dosage: FORM STRENGTH 100 MG
  16. METAMIZOLE [Concomitant]
     Active Substance: METAMIZOLE
     Indication: Pain
     Dosage: UP TO 4 TIMES IN 24 HOURS
  17. VITAMIN B12 [Concomitant]
     Active Substance: CYANOCOBALAMIN
     Indication: Product used for unknown indication
     Dosage: FORM STRENGTH 1000 IU
     Route: 058

REACTIONS (19)
  - Suicidal ideation [Unknown]
  - Decreased vibratory sense [Unknown]
  - Hyporeflexia [Unknown]
  - Nightmare [Unknown]
  - Muscle spasms [Unknown]
  - Musculoskeletal stiffness [Unknown]
  - Hypokinesia [Unknown]
  - Grimacing [Unknown]
  - Dyskinesia [Unknown]
  - Dystonia [Unknown]
  - Pain [Unknown]
  - Hyperkinesia [Unknown]
  - Mobility decreased [Unknown]
  - Grip strength decreased [Unknown]
  - Gait disturbance [Unknown]
  - General physical health deterioration [Unknown]
  - Reduced facial expression [Unknown]
  - Muscle rigidity [Unknown]
  - Screaming [Unknown]
